FAERS Safety Report 10903376 (Version 1)
Quarter: 2015Q1

REPORT INFORMATION
  Report Type: Spontaneous
  Country: US (occurrence: None)
  Receive Date: 20150304
  Receipt Date: 20150304
  Transmission Date: 20150721
  Serious: Yes (Other)
  Sender: FDA-Public Use
  Company Number: None

PATIENT
  Age: 77 Year
  Sex: Female

DRUGS (1)
  1. FORTEO [Suspect]
     Active Substance: TERIPARATIDE
     Indication: FEMUR FRACTURE
     Route: 058
     Dates: start: 20150107

REACTIONS (2)
  - Injection site haematoma [None]
  - Eye haemorrhage [None]

NARRATIVE: CASE EVENT DATE: 20150224
